FAERS Safety Report 14562801 (Version 1)
Quarter: 2018Q1

REPORT INFORMATION
  Report Type: Spontaneous
  Country: US (occurrence: US)
  Receive Date: 20180221
  Receipt Date: 20180221
  Transmission Date: 20180509
  Serious: Yes (Hospitalization)
  Sender: FDA-Public Use
  Company Number: None

PATIENT
  Age: 46 Year
  Sex: Male
  Weight: 79 kg

DRUGS (3)
  1. COSENTYX [Suspect]
     Active Substance: SECUKINUMAB
     Indication: PSORIASIS
  2. COSENTYX [Suspect]
     Active Substance: SECUKINUMAB
     Indication: ARTERIOSCLEROSIS
  3. COSENTYX [Suspect]
     Active Substance: SECUKINUMAB
     Indication: PALMAR ERYTHEMA

REACTIONS (1)
  - Colitis [None]

NARRATIVE: CASE EVENT DATE: 20180215
